FAERS Safety Report 9076169 (Version 1)
Quarter: 2013Q1

REPORT INFORMATION
  Report Type: Spontaneous
  Country: US (occurrence: US)
  Receive Date: 20130129
  Receipt Date: 20130129
  Transmission Date: 20140127
  Serious: No
  Sender: FDA-Public Use
  Company Number: US-ABBOTT-12P-163-0896160-00

PATIENT
  Age: 60 Year
  Sex: 0

DRUGS (4)
  1. HUMIRA 40 MG/0.8 ML PEN [Suspect]
     Indication: PRODUCT USED FOR UNKNOWN INDICATION
  2. ENBREL [Suspect]
     Indication: PRODUCT USED FOR UNKNOWN INDICATION
  3. CELEBREX [Suspect]
     Indication: PAIN
  4. TRAMADOL [Concomitant]
     Indication: PAIN

REACTIONS (10)
  - Disorientation [Unknown]
  - Injection site pain [Unknown]
  - Urticaria [Unknown]
  - Urinary tract infection [Unknown]
  - Weight increased [Unknown]
  - Local swelling [Unknown]
  - Pain [Unknown]
  - Joint stiffness [Unknown]
  - Urinary tract infection [Unknown]
  - Ulcer [Unknown]
